FAERS Safety Report 4902720-9 (Version None)
Quarter: 2006Q1

REPORT INFORMATION
  Report Type: 
  Country: None (occurrence: None)
  Receive Date: 20060207
  Receipt Date: 20060124
  Transmission Date: 20060701
  Serious: Yes (Other)
  Sender: FDA-Public Use
  Company Number: BE-ROCHE-433261

PATIENT
  Sex: Female
  Weight: 50 kg

DRUGS (1)
  1. ROACCUTANE [Suspect]
     Indication: DRUG USE FOR UNKNOWN INDICATION
     Route: 048
     Dates: start: 20050615

REACTIONS (2)
  - ARTHRALGIA [None]
  - DIFFICULTY IN WALKING [None]
